FAERS Safety Report 6038552-0 (Version None)
Quarter: 2009Q1

REPORT INFORMATION
  Report Type: 
  Country: None (occurrence: None)
  Receive Date: 20090115
  Receipt Date: 20081017
  Transmission Date: 20090719
  Serious: No
  Sender: FDA-Public Use
  Company Number: US-KINGPHARMUSA00001-K200801210

PATIENT
  Age: 11 Year
  Sex: Female

DRUGS (1)
  1. EPIPEN [Suspect]
     Indication: ANAPHYLACTIC REACTION
     Dosage: UNK, SINGLE
     Route: 030
     Dates: start: 20081016, end: 20081016

REACTIONS (1)
  - INJECTION SITE PAIN [None]
